FAERS Safety Report 19479347 (Version 2)
Quarter: 2021Q3

REPORT INFORMATION
  Report Type: Spontaneous
  Country: JP (occurrence: JP)
  Receive Date: 20210630
  Receipt Date: 20210817
  Transmission Date: 20211014
  Serious: Yes (Death, Other)
  Sender: FDA-Public Use
  Company Number: JP-ELI_LILLY_AND_COMPANY-JP202106010198

PATIENT
  Age: 77 Year
  Sex: Male
  Weight: 64 kg

DRUGS (8)
  1. CYRAMZA [Suspect]
     Active Substance: RAMUCIRUMAB
     Indication: LUNG ADENOCARCINOMA
     Dosage: 640 MG
     Route: 041
     Dates: start: 20210331
  2. ALLOPURINOL. [Concomitant]
     Active Substance: ALLOPURINOL
     Dosage: 100 MG, DAILY
     Route: 048
  3. PEGFILGRASTIM [Concomitant]
     Active Substance: PEGFILGRASTIM
     Dosage: 2.6 MG
     Route: 058
     Dates: start: 20210402
  4. RISPERIDONE. [Concomitant]
     Active Substance: RISPERIDONE
     Dosage: 0.5 MG
     Route: 048
  5. DOCETAXEL. [Suspect]
     Active Substance: DOCETAXEL
     Indication: LUNG ADENOCARCINOMA
     Dosage: 110 MG
     Route: 041
     Dates: start: 20210331
  6. RUPAFIN [Concomitant]
     Active Substance: RUPATADINE FUMARATE
     Dosage: 10 MG, DAILY
     Route: 048
  7. ACETAMINOPHEN. [Concomitant]
     Active Substance: ACETAMINOPHEN
     Dosage: 600 MG, TID
     Route: 048
  8. TAKECAB [Concomitant]
     Active Substance: VONOPRAZAN FUMARATE
     Dosage: 20 MG, DAILY
     Route: 048
     Dates: start: 20210522

REACTIONS (10)
  - Back pain [Unknown]
  - Septic shock [Unknown]
  - Gastric ulcer haemorrhage [Fatal]
  - Dehydration [Unknown]
  - Epistaxis [Unknown]
  - Febrile neutropenia [Unknown]
  - Metabolic acidosis [Unknown]
  - Pneumonia [Unknown]
  - Blood pressure decreased [Unknown]
  - Decreased appetite [Unknown]

NARRATIVE: CASE EVENT DATE: 20210507
